FAERS Safety Report 15585873 (Version 1)
Quarter: 2018Q4

REPORT INFORMATION
  Report Type: Spontaneous
  Country: US (occurrence: US)
  Receive Date: 20181105
  Receipt Date: 20181105
  Transmission Date: 20190205
  Serious: No
  Sender: FDA-Public Use
  Company Number: US-MYLANLABS-2018M1078275

PATIENT
  Sex: Female
  Weight: 87.8 kg

DRUGS (2)
  1. DIAZEPAM. [Suspect]
     Active Substance: DIAZEPAM
     Indication: ANXIETY
     Dosage: 5 MG, UNK
     Route: 048
  2. DIAZEPAM. [Suspect]
     Active Substance: DIAZEPAM
     Indication: INSOMNIA
     Dosage: 5 MG, HS
     Route: 048
     Dates: start: 201809, end: 20181007

REACTIONS (5)
  - Hangover [Recovering/Resolving]
  - Feeling abnormal [Recovering/Resolving]
  - Agitation [Recovering/Resolving]
  - Balance disorder [Recovering/Resolving]
  - Wrong technique in product usage process [Unknown]
